FAERS Safety Report 13895069 (Version 1)
Quarter: 2017Q3

REPORT INFORMATION
  Report Type: Spontaneous
  Country: US (occurrence: None)
  Receive Date: 20170817
  Receipt Date: 20170817
  Transmission Date: 20171127
  Serious: Yes (Other)
  Sender: FDA-Public Use
  Company Number: None

PATIENT
  Age: 27 Year
  Sex: Female

DRUGS (1)
  1. AVONEX [Suspect]
     Active Substance: INTERFERON BETA-1A
     Indication: MULTIPLE SCLEROSIS
     Route: 030
     Dates: start: 20161003

REACTIONS (5)
  - Depression [None]
  - Dizziness [None]
  - Irritability [None]
  - Vision blurred [None]
  - Loss of consciousness [None]

NARRATIVE: CASE EVENT DATE: 20170815
